FAERS Safety Report 9896848 (Version 2)
Quarter: 2014Q2

REPORT INFORMATION
  Report Type: Spontaneous
  Country: AR (occurrence: AR)
  Receive Date: 20140214
  Receipt Date: 20140404
  Transmission Date: 20141212
  Serious: Yes (Death, Hospitalization, Other)
  Sender: FDA-Public Use
  Company Number: AR-AMGEN-ARGSP2014010333

PATIENT
  Age: 50 Year
  Sex: Female

DRUGS (1)
  1. ENBREL [Suspect]
     Indication: RHEUMATOID ARTHRITIS
     Dosage: 50 MG, WEEKLY
     Route: 065
     Dates: start: 20081102, end: 201311

REACTIONS (7)
  - Cardio-respiratory arrest [Fatal]
  - Decreased immune responsiveness [Unknown]
  - Hypotension [Unknown]
  - White blood cell count increased [Unknown]
  - Sepsis [Fatal]
  - Device related infection [Unknown]
  - Pneumonia [Unknown]
